FAERS Safety Report 4962269-4 (Version None)
Quarter: 2006Q2

REPORT INFORMATION
  Report Type: 
  Country: None (occurrence: None)
  Receive Date: 20060404
  Receipt Date: 20060317
  Transmission Date: 20061013
  Serious: Yes (Death)
  Sender: FDA-Public Use
  Company Number: JP-AVENTIS-200610915JP

PATIENT
  Age: 86 Year
  Sex: Female

DRUGS (13)
  1. LASIX [Suspect]
     Indication: HYPERTENSION
     Route: 048
     Dates: end: 20060302
  2. TAMIFLU [Suspect]
     Indication: INFLUENZA
     Route: 048
     Dates: start: 20060227, end: 20060302
  3. INTEBAN [Suspect]
     Indication: PYREXIA
     Route: 054
     Dates: start: 20060227, end: 20060303
  4. LOXONIN [Suspect]
     Indication: PYREXIA
     Route: 048
     Dates: start: 20060227, end: 20060302
  5. NU-LOTAN [Suspect]
     Indication: HYPERTENSION
     Route: 048
     Dates: end: 20060302
  6. BEPRICOR [Suspect]
     Indication: HYPERTENSION
     Route: 048
     Dates: end: 20060302
  7. WARFARIN SODIUM [Concomitant]
     Indication: ARRHYTHMIA
     Route: 048
     Dates: end: 20060302
  8. NEUTROGIN [Concomitant]
     Route: 058
     Dates: start: 20060301, end: 20060303
  9. ARGAMATE [Concomitant]
     Route: 048
     Dates: end: 20060302
  10. AMOBAN [Concomitant]
     Route: 048
     Dates: start: 20060301, end: 20060301
  11. CEFAMEZIN [Concomitant]
     Indication: PNEUMONIA
     Route: 042
     Dates: start: 20060301, end: 20060302
  12. CLINDAMYCIN [Concomitant]
     Indication: PNEUMONIA
     Route: 042
     Dates: start: 20060302, end: 20060303
  13. MEROPEN [Concomitant]
     Indication: PNEUMONIA
     Route: 042
     Dates: start: 20060302, end: 20060303

REACTIONS (25)
  - ACTIVATED PARTIAL THROMBOPLASTIN TIME PROLONGED [None]
  - AGRANULOCYTOSIS [None]
  - BLOOD ALKALINE PHOSPHATASE INCREASED [None]
  - BLOOD CALCIUM DECREASED [None]
  - BLOOD CHLORIDE DECREASED [None]
  - BLOOD CREATININE INCREASED [None]
  - BLOOD LACTATE DEHYDROGENASE INCREASED [None]
  - BLOOD SODIUM DECREASED [None]
  - C-REACTIVE PROTEIN INCREASED [None]
  - DISSEMINATED INTRAVASCULAR COAGULATION [None]
  - DYSPNOEA [None]
  - HAEMATOCRIT DECREASED [None]
  - HAEMOGLOBIN DECREASED [None]
  - LEUKOPENIA [None]
  - LYMPHOCYTE PERCENTAGE DECREASED [None]
  - MONOCYTE PERCENTAGE INCREASED [None]
  - NEUTROPHIL PERCENTAGE DECREASED [None]
  - PLATELET COUNT DECREASED [None]
  - PNEUMONIA BACTERIAL [None]
  - PNEUMONIA VIRAL [None]
  - PROTEIN TOTAL DECREASED [None]
  - PROTHROMBIN TIME PROLONGED [None]
  - RED BLOOD CELL COUNT DECREASED [None]
  - SKIN CANCER [None]
  - WHEEZING [None]
